FAERS Safety Report 7937938-4 (Version None)
Quarter: 2011Q4

REPORT INFORMATION
  Report Type: 
  Country: None (occurrence: None)
  Receive Date: 20111123
  Receipt Date: 20111114
  Transmission Date: 20120403
  Serious: Yes (Other)
  Sender: FDA-Public Use
  Company Number: GB-TEVA-309806ISR

PATIENT
  Age: 52 Year
  Sex: Female

DRUGS (5)
  1. LAMOTRIGINE [Suspect]
     Indication: EPILEPSY
  2. BENDROFLUMETHIAZIDE [Suspect]
     Indication: EPILEPSY
  3. CITALOPRAM HYDROBROMIDE [Suspect]
     Indication: EPILEPSY
  4. CARBAMAZEPINE [Suspect]
  5. CARBAMAZEPINE [Suspect]
     Indication: EPILEPSY

REACTIONS (5)
  - CONFUSIONAL STATE [None]
  - LETHARGY [None]
  - HYPERAMMONAEMIA [None]
  - SOMNOLENCE [None]
  - URINARY TRACT INFECTION [None]
